FAERS Safety Report 11540461 (Version 1)
Quarter: 2015Q3

REPORT INFORMATION
  Report Type: Spontaneous
  Country: US (occurrence: US)
  Receive Date: 20150923
  Receipt Date: 20150923
  Transmission Date: 20151125
  Serious: No
  Sender: FDA-Public Use
  Company Number: US-BEH-2014046977

PATIENT
  Age: 11 Year
  Sex: Female
  Weight: 49 kg

DRUGS (24)
  1. VANICREAM [Concomitant]
     Active Substance: TITANIUM DIOXIDE\ZINC OXIDE
  2. PLAQUENIL [Concomitant]
     Active Substance: HYDROXYCHLOROQUINE SULFATE
  3. SODIUM CHLORIDE. [Concomitant]
     Active Substance: SODIUM CHLORIDE
  4. AMMONIUM LACTATE. [Concomitant]
     Active Substance: AMMONIUM LACTATE
  5. HYDROCORT-PRAMOXINE [Concomitant]
  6. VALIUM [Concomitant]
     Active Substance: DIAZEPAM
  7. ACETAMINOPHEN. [Concomitant]
     Active Substance: ACETAMINOPHEN
  8. DEXTROSE. [Concomitant]
     Active Substance: DEXTROSE
  9. TRAMADOL. [Concomitant]
     Active Substance: TRAMADOL
  10. HYDROXYZINE [Concomitant]
     Active Substance: HYDROXYZINE\HYDROXYZINE HYDROCHLORIDE
  11. PRIVIGEN [Suspect]
     Active Substance: HUMAN IMMUNOGLOBULIN G
     Indication: DERMATOMYOSITIS
     Route: 042
  12. PRIVIGEN [Suspect]
     Active Substance: HUMAN IMMUNOGLOBULIN G
     Indication: POLYMYOSITIS
     Route: 042
  13. DIPHENHYDRAMINE. [Concomitant]
     Active Substance: DIPHENHYDRAMINE
  14. EPIPEN [Concomitant]
     Active Substance: EPINEPHRINE
  15. PRAMOXINE [Concomitant]
     Active Substance: PRAMOXINE
  16. REMICADE [Concomitant]
     Active Substance: INFLIXIMAB
  17. TAMIFLU [Concomitant]
     Active Substance: OSELTAMIVIR PHOSPHATE
  18. HEPARIN [Concomitant]
     Active Substance: HEPARIN SODIUM
  19. LMX [Concomitant]
     Active Substance: LIDOCAINE
  20. PROTOPIC [Concomitant]
     Active Substance: TACROLIMUS
  21. PREDNISONE. [Concomitant]
     Active Substance: PREDNISONE
  22. FOLIC ACID. [Concomitant]
     Active Substance: FOLIC ACID
  23. SOLU-MEDROL [Concomitant]
     Active Substance: METHYLPREDNISOLONE SODIUM SUCCINATE
  24. PREVACID [Concomitant]
     Active Substance: LANSOPRAZOLE

REACTIONS (3)
  - Vision blurred [Unknown]
  - Abdominal pain upper [Unknown]
  - Neck pain [Unknown]

NARRATIVE: CASE EVENT DATE: 20141128
